FAERS Safety Report 10201300 (Version 1)
Quarter: 2014Q2

REPORT INFORMATION
  Report Type: Spontaneous
  Country: FR (occurrence: FR)
  Receive Date: 20140528
  Receipt Date: 20140528
  Transmission Date: 20141212
  Serious: Yes (Death)
  Sender: FDA-Public Use
  Company Number: FR-PFIZER INC-2014142051

PATIENT
  Age: 85 Year
  Sex: Female
  Weight: 35 kg

DRUGS (2)
  1. TAZOCILLINE [Suspect]
     Indication: PSEUDOMONAS INFECTION
     Dosage: 4.5 G (4G-0.5G), UNK
  2. CIFLOX [Concomitant]
     Indication: PSEUDOMONAS INFECTION

REACTIONS (3)
  - Hypovolaemic shock [Fatal]
  - Fluid overload [Fatal]
  - Somnolence [Fatal]
